FAERS Safety Report 7060365-1 (Version None)
Quarter: 2010Q4

REPORT INFORMATION
  Report Type: 
  Country: None (occurrence: None)
  Receive Date: 20101025
  Receipt Date: 20101015
  Transmission Date: 20110411
  Serious: Yes (Other)
  Sender: FDA-Public Use
  Company Number: B0680986A

PATIENT
  Sex: Female

DRUGS (2)
  1. TYVERB [Suspect]
     Indication: BREAST CANCER
     Route: 048
  2. XELODA [Concomitant]
     Indication: BREAST CANCER

REACTIONS (2)
  - ASTHMA [None]
  - HYPERSENSITIVITY [None]
